FAERS Safety Report 7198832-2 (Version None)
Quarter: 2010Q4

REPORT INFORMATION
  Report Type: 
  Country: None (occurrence: None)
  Receive Date: 20101227
  Receipt Date: 20101110
  Transmission Date: 20110411
  Serious: Yes (Hospitalization)
  Sender: FDA-Public Use
  Company Number: IT-SANOFI-AVENTIS-2010SA068114

PATIENT
  Age: 30 Year
  Sex: Female

DRUGS (3)
  1. FERLIXIT [Suspect]
     Route: 041
     Dates: start: 20101031, end: 20101102
  2. DOBETIN [Concomitant]
     Route: 030
     Dates: start: 20101031, end: 20101107
  3. FOLINA [Concomitant]
     Route: 048
     Dates: start: 20101031, end: 20101107

REACTIONS (1)
  - INFUSION SITE THROMBOSIS [None]
